FAERS Safety Report 6663117-7 (Version None)
Quarter: 2010Q2

REPORT INFORMATION
  Report Type: 
  Country: None (occurrence: None)
  Receive Date: 20100401
  Receipt Date: 20100317
  Transmission Date: 20101027
  Serious: Yes (Hospitalization)
  Sender: FDA-Public Use
  Company Number: FR-JNJFOC-20100308767

PATIENT
  Age: 30 Year
  Sex: Female

DRUGS (15)
  1. IXPRIM [Suspect]
     Indication: DRUG USE FOR UNKNOWN INDICATION
     Dosage: 3 IN 1 DAY
     Route: 048
  2. ENZYME INHIBITORS [Suspect]
     Indication: DRUG USE FOR UNKNOWN INDICATION
     Route: 042
  3. LOVENOX [Concomitant]
  4. TRAMADOL HCL [Concomitant]
  5. SPASFON [Concomitant]
  6. ALL OTHER THERAPEUTIC PRODUCTS [Concomitant]
  7. ESOMEPRAZOLE [Concomitant]
  8. DEBRIDAT [Concomitant]
  9. XANAX [Concomitant]
  10. MORPHINE [Concomitant]
     Dosage: 4 IN 1 DAY
  11. CONTRAMAL [Concomitant]
  12. STILNOX [Concomitant]
  13. ACUPAN [Concomitant]
  14. ACTISKENAN [Concomitant]
  15. PARACETAMOL [Concomitant]

REACTIONS (1)
  - CYTOLYTIC HEPATITIS [None]
